FAERS Safety Report 11802491 (Version 1)
Quarter: 2015Q4

REPORT INFORMATION
  Report Type: Spontaneous
  Country: FR (occurrence: FR)
  Receive Date: 20151204
  Receipt Date: 20151204
  Transmission Date: 20160305
  Serious: Yes (Hospitalization)
  Sender: FDA-Public Use
  Company Number: FR-TEVA-613630ISR

PATIENT
  Age: 42 Year
  Sex: Female

DRUGS (8)
  1. DOLIPRANE [Suspect]
     Active Substance: ACETAMINOPHEN
     Route: 048
     Dates: start: 20150217
  2. LAROXYL [Concomitant]
     Active Substance: AMITRIPTYLINE
     Dosage: LONG STANDING TREATMENT
  3. MIANSERINE [Concomitant]
     Active Substance: MIANSERIN HYDROCHLORIDE
     Dosage: LONG STANDING TREATMENT
  4. GABAPENTINE [Concomitant]
     Active Substance: GABAPENTIN
     Dosage: LONG STANDING TREATMENT
  5. AIROMIR [Suspect]
     Active Substance: ALBUTEROL SULFATE
     Route: 048
     Dates: start: 20150217
  6. IBUPROFENE [Suspect]
     Active Substance: IBUPROFEN
     Route: 048
     Dates: start: 20150217
  7. TRAMADOL. [Concomitant]
     Active Substance: TRAMADOL
     Dosage: LONG STANDING TREATMENT
  8. EXOMUC [Suspect]
     Active Substance: ACETYLCYSTEINE
     Route: 048
     Dates: start: 20150217

REACTIONS (10)
  - Face oedema [Recovered/Resolved]
  - Viral infection [Recovered/Resolved]
  - Hypersensitivity [Recovered/Resolved]
  - Erythema [Recovered/Resolved]
  - Dyspnoea [Recovered/Resolved]
  - Hypoxia [Recovered/Resolved]
  - Acute respiratory distress syndrome [Recovered/Resolved]
  - Toxic skin eruption [Recovered/Resolved]
  - Rash maculo-papular [Recovered/Resolved]
  - Influenza [Recovered/Resolved]

NARRATIVE: CASE EVENT DATE: 20150217
